FAERS Safety Report 5984857-9 (Version None)
Quarter: 2008Q4

REPORT INFORMATION
  Report Type: 
  Country: None (occurrence: None)
  Receive Date: 20081202
  Receipt Date: 20081118
  Transmission Date: 20090506
  Serious: Yes (Life-Threatening)
  Sender: FDA-Public Use
  Company Number: 005041

PATIENT
  Age: 52 Year
  Sex: Female

DRUGS (4)
  1. BUSULFEX [Suspect]
     Indication: STEM CELL TRANSPLANT
     Dosage: 6.4 ML, QD
     Route: 042
     Dates: start: 20070907, end: 20070907
  2. DEPAKENE [Concomitant]
  3. FLUDARABINE PHOSPHATE [Concomitant]
  4. FILGRASTIM (FILGRASTIM) [Concomitant]

REACTIONS (8)
  - ADULT T-CELL LYMPHOMA/LEUKAEMIA RECURRENT [None]
  - ANOREXIA [None]
  - BONE MARROW TRANSPLANT [None]
  - CYTOMEGALOVIRUS VIRAEMIA [None]
  - DIARRHOEA [None]
  - HYPOKALAEMIA [None]
  - MALAISE [None]
  - NAUSEA [None]
